FAERS Safety Report 8305409-1 (Version None)
Quarter: 2012Q2

REPORT INFORMATION
  Report Type: 
  Country: None (occurrence: None)
  Receive Date: 20120423
  Receipt Date: 20120417
  Transmission Date: 20120825
  Serious: Yes (Hospitalization, Other)
  Sender: FDA-Public Use
  Company Number: US-BAYER-2012-034564

PATIENT
  Age: 41 Year
  Sex: Female

DRUGS (3)
  1. SEROQUEL [Concomitant]
     Dosage: 200 MG, UNK
     Dates: start: 20040101
  2. BETASERON [Suspect]
     Indication: MULTIPLE SCLEROSIS
     Dosage: 8 MIU, QOD
     Route: 058
     Dates: start: 20050509
  3. OTHER HYPNOTICS AND SEDATIVES [Concomitant]
     Dosage: UNK UNK, QD AT 6:30PM

REACTIONS (7)
  - INJECTION SITE PAIN [None]
  - PERIPHERAL COLDNESS [None]
  - MENORRHAGIA [None]
  - MENSTRUAL DISORDER [None]
  - HYPOAESTHESIA [None]
  - DYSMENORRHOEA [None]
  - VAGINAL HAEMORRHAGE [None]
